FAERS Safety Report 5442681-X (Version None)
Quarter: 2007Q3

REPORT INFORMATION
  Report Type: 
  Country: None (occurrence: None)
  Receive Date: 20070904
  Receipt Date: 20070824
  Transmission Date: 20080115
  Serious: Yes (Hospitalization, Other)
  Sender: FDA-Public Use
  Company Number: US-SHR-US-2007-031951

PATIENT
  Age: 47 Year
  Sex: Female
  Weight: 81 kg

DRUGS (1)
  1. MIRENA [Suspect]
     Indication: CONTRACEPTION
     Dosage: 20 A?G/DAY, CONT
     Route: 015
     Dates: start: 20070531

REACTIONS (3)
  - DYSPNOEA [None]
  - HEART RATE IRREGULAR [None]
  - RENAL FAILURE [None]
